FAERS Safety Report 8335664 (Version 2)
Quarter: 2014Q2

REPORT INFORMATION
  Report Type: Spontaneous
  Country: US (occurrence: None)
  Receive Date: 20111201
  Receipt Date: 20140604
  Transmission Date: 20141212
  Serious: Yes (Hospitalization)
  Sender: FDA-Public Use
  Company Number: 20110803CINRY2165

PATIENT
  Age: 32 Year
  Sex: Female

DRUGS (1)
  1. CINRYZE [Suspect]
     Indication: PRODUCT USED FOR UNKNOWN INDICATION
     Dosage: UNKNOWN, INTRAVENOUS
     Route: 042

REACTIONS (3)
  - Hereditary angioedema [None]
  - Anxiety [None]
  - Chest pain [None]
